FAERS Safety Report 8890852 (Version 1)
Quarter: 2012Q4

REPORT INFORMATION
  Report Type: Report from Study
  Country: FR (occurrence: FR)
  Receive Date: 20121107
  Receipt Date: 20121107
  Transmission Date: 20130627
  Serious: Yes (Death, Hospitalization)
  Sender: FDA-Public Use
  Company Number: FR-ROCHE-1153041

PATIENT
  Sex: Female

DRUGS (12)
  1. BEVACIZUMAB [Suspect]
     Indication: COLORECTAL CANCER METASTATIC
     Dosage: last dose taken: 230mg
     Route: 042
  2. IRINOTECAN [Suspect]
     Indication: COLORECTAL CANCER METASTATIC
     Dosage: last dose taken: 249mg
     Route: 065
  3. FOLINIC ACID [Suspect]
     Indication: COLORECTAL CANCER METASTATIC
     Dosage: last dose taken: 275mg
     Route: 065
  4. 5-FU [Suspect]
     Indication: COLORECTAL CANCER METASTATIC
     Dosage: last dose taken: 550mg bolus and 3250mg as continousing dosing
     Route: 065
  5. LEVOTHYROX [Concomitant]
     Indication: HYPOTHYROIDISM
     Route: 065
  6. MODURETIC [Concomitant]
     Indication: HYPERTENSION
     Route: 065
  7. LOGIMAX [Concomitant]
     Indication: HYPERTENSION
     Dosage: 5mg/47.5mg
     Route: 065
  8. CALCIDOSE [Concomitant]
     Indication: CALCIUM DEFICIENCY
     Route: 065
  9. ZOCOR [Concomitant]
     Indication: HYPERCHOLESTEROLAEMIA
     Route: 065
  10. XYLOCAINE [Concomitant]
     Indication: MUCOSAL INFLAMMATION
     Route: 065
     Dates: start: 20110825
  11. MEDROL [Concomitant]
     Route: 065
     Dates: start: 20110811
  12. INEXIUM [Concomitant]
     Indication: DYSPEPSIA
     Route: 065
     Dates: start: 20110825

REACTIONS (4)
  - Respiratory distress [Fatal]
  - General physical health deterioration [Unknown]
  - Neutropenia [Unknown]
  - Hypothermia [Unknown]
